FAERS Safety Report 8870866 (Version 6)
Quarter: 2013Q4

REPORT INFORMATION
  Report Type: Report from Study
  Country: NL (occurrence: NL)
  Receive Date: 20121029
  Receipt Date: 20131224
  Transmission Date: 20140711
  Serious: Yes (Hospitalization)
  Sender: FDA-Public Use
  Company Number: PHHO2012NL014967

PATIENT
  Age: 53 Year
  Sex: Male
  Weight: 103 kg

DRUGS (11)
  1. PROGRAF [Suspect]
     Indication: RENAL TRANSPLANT
     Dosage: 5 MG, BID
     Dates: start: 20110328
  2. CO-TRIMOXAZOLE [Suspect]
     Dosage: 480 MG, QD
     Route: 065
     Dates: start: 20110328
  3. MYFORTIC [Concomitant]
     Indication: RENAL TRANSPLANT
     Dosage: 360 MG, BID
     Route: 048
     Dates: start: 20110328
  4. PREDNISOLONE [Concomitant]
     Indication: RENAL TRANSPLANT
     Dosage: 10 MG, QD
     Route: 065
     Dates: start: 20110421
  5. SELOKEN ZOC [Concomitant]
     Indication: BLOOD PRESSURE MANAGEMENT
     Dosage: 1X100 MG, UNK
     Route: 065
     Dates: start: 20120601
  6. ZOLPIDEM TARTRATE [Concomitant]
     Indication: BLOOD PRESSURE MANAGEMENT
     Dosage: 1 X 10 MG, UNK
     Route: 065
     Dates: start: 20120601
  7. ENALAPRIL [Concomitant]
     Indication: BLOOD PRESSURE MANAGEMENT
     Dosage: 1 X 10 MG, UNK
     Route: 065
     Dates: start: 20111107
  8. SINEMET [Concomitant]
     Indication: TREMOR
     Dosage: 2X DD 1/2
     Dates: start: 20110411
  9. ADALAT [Concomitant]
     Indication: BLOOD PRESSURE MANAGEMENT
     Dosage: 30 MG, QD
     Route: 065
     Dates: start: 20120523
  10. VALCYTE [Concomitant]
     Dosage: 450 MG, BID
     Route: 048
     Dates: start: 20120619
  11. ASCAL CARDIO [Concomitant]
     Indication: PROPHYLAXIS
     Dosage: 1 X DD 100 MG, UNK
     Dates: start: 20110411

REACTIONS (1)
  - Gastrointestinal obstruction [Recovering/Resolving]
